FAERS Safety Report 4313140-2 (Version None)
Quarter: 2004Q1

REPORT INFORMATION
  Report Type: 
  Country: None (occurrence: None)
  Receive Date: 20040304
  Receipt Date: 20040227
  Transmission Date: 20041129
  Serious: Yes (Other)
  Sender: FDA-Public Use
  Company Number: 200411011BCC

PATIENT
  Age: 76 Year
  Sex: Female
  Weight: 98.8842 kg

DRUGS (3)
  1. ALEVE [Suspect]
     Indication: ARTHRALGIA
     Dosage: 440 MG, QD, ORAL
     Route: 048
     Dates: start: 20040201
  2. ALLOPURINOL [Concomitant]
  3. TUMS [Concomitant]

REACTIONS (1)
  - METRORRHAGIA [None]
